FAERS Safety Report 4425512-6 (Version None)
Quarter: 2004Q3

REPORT INFORMATION
  Report Type: 
  Country: None (occurrence: None)
  Receive Date: 20040719
  Receipt Date: 20030825
  Transmission Date: 20050211
  Serious: Yes (Hospitalization)
  Sender: FDA-Public Use
  Company Number: 151800

PATIENT
  Age: 35 Year
  Sex: Female

DRUGS (7)
  1. AVONEX [Suspect]
     Indication: MULTIPLE SCLEROSIS
     Dates: start: 20000101, end: 20001101
  2. AVONEX [Suspect]
     Indication: MULTIPLE SCLEROSIS
     Dates: start: 20001201
  3. ZANTAC [Concomitant]
  4. MOTRIN [Concomitant]
  5. MIDOL [Concomitant]
  6. AMPICILLIN [Concomitant]
  7. TERAZOL 7 [Concomitant]

REACTIONS (1)
  - ABORTION SPONTANEOUS [None]
